FAERS Safety Report 23449900 (Version 3)
Quarter: 2024Q1

REPORT INFORMATION
  Report Type: Spontaneous
  Country: US (occurrence: None)
  Receive Date: 20240129
  Receipt Date: 20240218
  Transmission Date: 20240410
  Serious: Yes (Other)
  Sender: FDA-Public Use
  Company Number: 2024A018643

PATIENT
  Age: 28955 Day
  Sex: Male
  Weight: 125.2 kg

DRUGS (5)
  1. BYDUREON BCISE [Suspect]
     Active Substance: EXENATIDE
     Dosage: 2.0MG UNKNOWN
     Route: 058
  2. VIBRAMYCIN [Concomitant]
     Active Substance: DOXYCYCLINE
     Route: 048
     Dates: start: 20240130, end: 20240209
  3. ZETIA [Concomitant]
     Active Substance: EZETIMIBE
     Route: 048
     Dates: start: 20240131
  4. NORMODYNE [Concomitant]
     Active Substance: LABETALOL HYDROCHLORIDE
     Route: 048
     Dates: start: 20240130
  5. ALBUTEROL SULFATE [Concomitant]
     Active Substance: ALBUTEROL SULFATE
     Dosage: AS NEEDED
     Route: 055
     Dates: start: 20240130

REACTIONS (26)
  - Type IIa hyperlipidaemia [Unknown]
  - Apnoea [Unknown]
  - Anaemia [Unknown]
  - Vitamin D deficiency [Unknown]
  - Urinary tract infection [Unknown]
  - Bacteriuria [Unknown]
  - Pollakiuria [Unknown]
  - Nocturia [Unknown]
  - Obstructive sleep apnoea syndrome [Unknown]
  - Anxiety [Unknown]
  - Insomnia [Unknown]
  - Myopathy [Unknown]
  - Obesity [Unknown]
  - Blood pressure increased [Unknown]
  - Sinus rhythm [Unknown]
  - Lipids abnormal [Unknown]
  - Rhinorrhoea [Unknown]
  - Dyspnoea exertional [Unknown]
  - Dry skin [Unknown]
  - Back pain [Unknown]
  - Glycosylated haemoglobin increased [Unknown]
  - Injection site injury [Unknown]
  - Injection site pain [Unknown]
  - Injection site haemorrhage [Unknown]
  - Device issue [Unknown]
  - Device leakage [Unknown]

NARRATIVE: CASE EVENT DATE: 20240121
